FAERS Safety Report 23569124 (Version 2)
Quarter: 2024Q1

REPORT INFORMATION
  Report Type: Report from Study
  Country: HU (occurrence: HU)
  Receive Date: 20240227
  Receipt Date: 20240307
  Transmission Date: 20240409
  Serious: Yes (Hospitalization)
  Sender: FDA-Public Use
  Company Number: HU-ABBVIE-5654306

PATIENT
  Age: 73 Year
  Sex: Male

DRUGS (14)
  1. CARBIDOPA\LEVODOPA [Suspect]
     Active Substance: CARBIDOPA\LEVODOPA
     Indication: Parkinson^s disease
     Dosage: MORNING DOSE: 9.5 ML; CONTINUOUS DOSE: 3.5 ML/HOUR; EXTRA DOSE: 2.0 ML
     Route: 050
     Dates: start: 20140404
  2. CARBIDOPA\LEVODOPA [Suspect]
     Active Substance: CARBIDOPA\LEVODOPA
  3. FAMOTIDINE [Concomitant]
     Active Substance: FAMOTIDINE
     Indication: Prophylaxis
     Dosage: 40 MILLIGRAM?FORM STRENGTH: 20 MILLIGRAM
     Route: 048
     Dates: start: 201901
  4. VALPROIC ACID [Concomitant]
     Active Substance: VALPROIC ACID
     Indication: Affective disorder
     Dosage: 450 MILLIGRAM? FORM STRENGTH: 300 MG?FORM STRENGTH UNITS: MILLIGRAM?FREQUENCY TEXT: MORNING 0.5 A...
     Route: 048
     Dates: start: 201509
  5. ALPRAZOLAM [Concomitant]
     Active Substance: ALPRAZOLAM
     Indication: Affective disorder
     Dosage: 1 MILLIGRAM? FORM STRENGTH: 0.5 MILLIGRAM
     Route: 048
     Dates: start: 2005
  6. TAMSULOSIN HYDROCHLORIDE [Concomitant]
     Active Substance: TAMSULOSIN HYDROCHLORIDE
     Indication: Benign prostatic hyperplasia
     Dosage: 0.4 MILLIGRAM
     Route: 048
     Dates: start: 2011
  7. SPIRONOLACTONE [Concomitant]
     Active Substance: SPIRONOLACTONE
     Indication: Oedema peripheral
     Dosage: 50 MILLIGRAM
     Route: 048
     Dates: start: 2013
  8. SCIPPA [Concomitant]
     Indication: Affective disorder
     Dosage: 20 MILLIGRAM?FORM STRENGTH: 20 MILLIGRAM
     Route: 048
     Dates: start: 201509
  9. FOLIC ACID [Concomitant]
     Active Substance: FOLIC ACID
     Indication: Polyneuropathy
     Dosage: 3 MILLIGRAM
     Route: 048
     Dates: start: 2015
  10. Fenoswiss (Fenofibrate) [Concomitant]
     Indication: Blood cholesterol increased
     Dosage: 160 MILLIGRAM
     Route: 048
     Dates: start: 2018
  11. LEVOTHYROXINE SODIUM [Concomitant]
     Active Substance: LEVOTHYROXINE SODIUM
     Indication: Hypothyroidism
     Dosage: 25 MICROGRAM?FORM STRENGTH: 50 MICROGRAM?FREQUENCY TEXT: HALF TABLET DAILY
     Route: 048
     Dates: start: 2018
  12. VITAMIN B12 [Concomitant]
     Active Substance: CYANOCOBALAMIN
     Indication: Polyneuropathy
     Dosage: 300 MICROGRAM/ML MONTHLY?FREQUENCY TEXT: 1 AMPOULE MONTHLY?INJECTION
     Route: 030
     Dates: start: 2015
  13. Benserazide;Levodopa (Benserazide;Levodopa) [Concomitant]
     Indication: Parkinson^s disease
     Dosage: 100 MG LEVODOPA, 25 MG BENSERAZIDE / TABLET? (MADOPAR)?- FORM STRENGTH: 125 MILLIGRAM
     Route: 048
     Dates: start: 2001
  14. WARFARIN [Concomitant]
     Active Substance: WARFARIN
     Indication: Pulmonary embolism
     Dosage: FREQUENCY TEXT: 5MG 5 DAYS WEEKLY, 7.5 MG  2 DAYS WEAKLY
     Route: 048
     Dates: start: 201901

REACTIONS (3)
  - Device issue [Not Recovered/Not Resolved]
  - Embedded device [Not Recovered/Not Resolved]
  - Embedded device [Not Recovered/Not Resolved]

NARRATIVE: CASE EVENT DATE: 20240215
